FAERS Safety Report 22083577 (Version 1)
Quarter: 2023Q1

REPORT INFORMATION
  Report Type: Other
  Country: DE (occurrence: None)
  Receive Date: 20230310
  Receipt Date: 20230310
  Transmission Date: 20230418
  Serious: No
  Sender: FDA-Public Use
  Company Number: DE-ROCHE-2802451

PATIENT
  Age: 41 Year
  Sex: Male

DRUGS (8)
  1. OCREVUS [Suspect]
     Active Substance: OCRELIZUMAB
     Indication: Relapsing-remitting multiple sclerosis
     Dosage: FREQUENCY: 176 DAYS?600MG 185 DAYS
     Route: 042
     Dates: start: 20210216
  2. OCREVUS [Suspect]
     Active Substance: OCRELIZUMAB
     Route: 042
     Dates: start: 20210830
  3. OCREVUS [Suspect]
     Active Substance: OCRELIZUMAB
     Route: 042
     Dates: start: 20210216, end: 20230302
  4. COMIRNATY [Suspect]
     Active Substance: TOZINAMERAN
     Indication: COVID-19 prophylaxis
     Dosage: FIRST DOSE OF VACCINATION.?SECOND DOSE ON17/JUL/2021
     Route: 065
     Dates: start: 20210605
  5. CETIRIZINE [Concomitant]
     Active Substance: CETIRIZINE HYDROCHLORIDE
  6. TRIMIPRAMINE [Concomitant]
     Active Substance: TRIMIPRAMINE
     Dosage: 0-0-0-1
  7. CLARITHROMYCIN [Concomitant]
     Active Substance: CLARITHROMYCIN
  8. CEFUROXIME [Concomitant]
     Active Substance: CEFUROXIME

REACTIONS (12)
  - Fatigue [Recovered/Resolved]
  - Chills [Recovered/Resolved]
  - Feeling cold [Recovered/Resolved]
  - Gait disturbance [Recovered/Resolved]
  - Mood swings [Recovered/Resolved]
  - Drug ineffective [Unknown]
  - Respiratory syncytial virus infection [Recovered/Resolved]
  - Peripheral vein occlusion [Recovered/Resolved]
  - Peripheral swelling [Recovering/Resolving]
  - Haematoma [Not Recovered/Not Resolved]
  - Elbow deformity [Not Recovered/Not Resolved]
  - Elbow deformity [Recovered/Resolved]

NARRATIVE: CASE EVENT DATE: 20210216
